FAERS Safety Report 6241023-X (Version None)
Quarter: 2009Q2

REPORT INFORMATION
  Report Type: 
  Country: None (occurrence: None)
  Receive Date: 20090623
  Receipt Date: 20090612
  Transmission Date: 20091009
  Serious: Yes (Life-Threatening)
  Sender: FDA-Public Use
  Company Number: AU-JNJFOC-20090604786

PATIENT
  Age: 20 Year
  Sex: Male

DRUGS (5)
  1. REMICADE [Suspect]
     Indication: DRUG USE FOR UNKNOWN INDICATION
     Route: 042
  2. CORTISONE ACETATE [Concomitant]
  3. DESMOPRESSIN ACETATE [Concomitant]
  4. MESALAZINE [Concomitant]
  5. LEVOTHYROXINE SODIUM [Concomitant]

REACTIONS (2)
  - BRAIN NEOPLASM MALIGNANT [None]
  - LANGERHANS' CELL GRANULOMATOSIS [None]
